FAERS Safety Report 8403178-8 (Version None)
Quarter: 2012Q2

REPORT INFORMATION
  Report Type: 
  Country: None (occurrence: None)
  Receive Date: 20120601
  Receipt Date: 20120523
  Transmission Date: 20120825
  Serious: Yes (Hospitalization)
  Sender: FDA-Public Use
  Company Number: CA-JNJFOC-20120518820

PATIENT
  Sex: Male
  Weight: 125 kg

DRUGS (20)
  1. REMICADE [Suspect]
     Indication: PSORIATIC ARTHROPATHY
     Dosage: 5MG/KG, 600 MG ONVER 2 HOURS ON WEEKS 0, 2, 6 AND EVERY 8 WEEKS AFTERWARDS
     Route: 042
  2. SULFASALAZINE [Concomitant]
     Dosage: 1 TABLET ONCE DAILY FOR 7 DAYS AND 1 TABLE TWICE DAILY FOR 7 DAYS AND 2 TABLETS TWICE A DAY
     Route: 065
  3. METHOTREXATE [Concomitant]
     Route: 065
  4. ABILIFY [Concomitant]
     Route: 065
  5. MORPHINE SULFATE [Concomitant]
     Route: 065
  6. REMICADE [Suspect]
     Dosage: 5 MG/KG
     Route: 042
     Dates: start: 20120523, end: 20120523
  7. DEXILANT [Concomitant]
     Route: 065
  8. ALL OTHER THERAPEUTIC PRODUCTS [Concomitant]
     Route: 065
  9. DEXAMETHASONE [Concomitant]
     Dosage: 1 DROP 4 TIMES A DAY IN RIGHT EYE FOR 5 DAYS
     Route: 065
  10. ZOPICLONE [Concomitant]
     Indication: INSOMNIA
     Route: 065
  11. TRAZODONE HCL [Concomitant]
     Route: 065
  12. RAN-PANTOPRAZOLE [Concomitant]
     Route: 065
  13. VENLAFAXINE HCL EXTENDED-RELEASE [Concomitant]
     Dosage: INCREASE TO 2 TAB IF NEEDED
     Route: 065
  14. SIMVASTATIN [Concomitant]
     Indication: PAIN
     Dosage: 1 TAB EVERY 4 HOURS IF NEEDED
     Route: 065
  15. VENLAFAXINE HCL EXTENDED-RELEASE [Concomitant]
     Route: 065
  16. VENLAFAXINE HCL EXTENDED-RELEASE [Concomitant]
     Route: 065
  17. ESCITALOPRAM [Concomitant]
     Route: 065
  18. EURO FOLIC [Concomitant]
     Dosage: TAKE 1 TABLET ONCE A DAY IN THE MORNING 6 DAYS OUT OF 7
     Route: 065
  19. CIALIS [Concomitant]
     Route: 065
  20. WELLBUTRIN XL [Concomitant]
     Indication: INSOMNIA
     Dosage: INCREASE TO 2 TAB IF NEEDED
     Route: 065

REACTIONS (3)
  - ELECTROCARDIOGRAM ABNORMAL [None]
  - CHEST PAIN [None]
  - ABDOMINAL PAIN UPPER [None]
